FAERS Safety Report 19785522 (Version 1)
Quarter: 2021Q3

REPORT INFORMATION
  Report Type: Spontaneous
  Country: US (occurrence: US)
  Receive Date: 20210903
  Receipt Date: 20210903
  Transmission Date: 20211014
  Serious: No
  Sender: FDA-Public Use
  Company Number: US-ORGANON-O2108USA001664

PATIENT
  Age: 74 Year
  Sex: Female

DRUGS (3)
  1. REMERON [Suspect]
     Active Substance: MIRTAZAPINE
     Dosage: 45MG ONCE DAILY
  2. REMERON [Suspect]
     Active Substance: MIRTAZAPINE
     Dosage: 30MG ONCE DAILY
  3. REMERON [Suspect]
     Active Substance: MIRTAZAPINE
     Indication: MAJOR DEPRESSION
     Dosage: 15MG ONCE DAILY

REACTIONS (1)
  - Product use in unapproved indication [Unknown]
